FAERS Safety Report 5415700-4 (Version None)
Quarter: 2007Q3

REPORT INFORMATION
  Report Type: 
  Country: None (occurrence: None)
  Receive Date: 20070815
  Receipt Date: 20070803
  Transmission Date: 20080115
  Serious: Yes (Other)
  Sender: FDA-Public Use
  Company Number: FR-PFIZER INC-2007065536

PATIENT
  Sex: Male

DRUGS (5)
  1. NEURONTIN [Suspect]
     Indication: FIBROMYALGIA
     Dosage: DAILY DOSE:1200MG
  2. NEURONTIN [Suspect]
     Indication: MIGRAINE
  3. ALMOTRIPTAN MALATE [Concomitant]
  4. KETOPROFEN [Concomitant]
  5. TOPIRAMATE [Concomitant]

REACTIONS (8)
  - AMNESIA [None]
  - DISORIENTATION [None]
  - DISTURBANCE IN ATTENTION [None]
  - EYE DISORDER [None]
  - FIBROMYALGIA [None]
  - KERATITIS [None]
  - MIGRAINE [None]
  - MUSCLE CONTRACTURE [None]
